FAERS Safety Report 15402206 (Version 1)
Quarter: 2018Q3

REPORT INFORMATION
  Report Type: Spontaneous
  Country: US (occurrence: US)
  Receive Date: 20180915
  Receipt Date: 20180915
  Transmission Date: 20181010
  Serious: Yes (Other)
  Sender: FDA-Public Use
  Company Number: None

PATIENT
  Age: 36 Year
  Sex: Male
  Weight: 78.75 kg

DRUGS (1)
  1. ROSUVASTATIN 20MG [Suspect]
     Active Substance: ROSUVASTATIN
     Indication: HYPERCHOLESTEROLAEMIA
     Dosage: ?          QUANTITY:90 TABLETS
     Route: 048

REACTIONS (5)
  - Pain in extremity [None]
  - Gait disturbance [None]
  - Product substitution issue [None]
  - Flushing [None]
  - Muscle spasms [None]

NARRATIVE: CASE EVENT DATE: 20180701
